FAERS Safety Report 5834000-1 (Version None)
Quarter: 2008Q3

REPORT INFORMATION
  Report Type: 
  Country: None (occurrence: None)
  Receive Date: 20080804
  Receipt Date: 20080804
  Transmission Date: 20090109
  Serious: Yes (Other)
  Sender: FDA-Public Use
  Company Number: None

PATIENT
  Age: 23 Year
  Sex: Female
  Weight: 61.2356 kg

DRUGS (1)
  1. WELLBUTRIN [Suspect]
     Indication: BIPOLAR I DISORDER

REACTIONS (4)
  - AGGRESSION [None]
  - AGITATION [None]
  - DELUSIONAL DISORDER, PERSECUTORY TYPE [None]
  - INTENTIONAL SELF-INJURY [None]
